FAERS Safety Report 7103089-4 (Version None)
Quarter: 2010Q4

REPORT INFORMATION
  Report Type: 
  Country: None (occurrence: None)
  Receive Date: 20101115
  Receipt Date: 20101005
  Transmission Date: 20110411
  Serious: Yes (Hospitalization, Other)
  Sender: FDA-Public Use
  Company Number: US-BAYER-200933102NA

PATIENT
  Age: 26 Year
  Sex: Female
  Weight: 64 kg

DRUGS (10)
  1. YASMIN [Suspect]
     Indication: ACNE
     Dosage: PHARMACY RECORDS: 16 SEP 05, 17 OCT 05, 31 OCT 05, 30 NOV 05, 06 FEB 06, 01 MAR 06, 03 APR 06
     Route: 048
     Dates: start: 20041001, end: 20070901
  2. NITROFURANTOIN [Concomitant]
     Dates: start: 20060401, end: 20070201
  3. SMP/TMZ [Concomitant]
     Dates: start: 20051021
  4. MUPIROCIN [Concomitant]
     Dates: start: 20051021
  5. ADVIL [Concomitant]
  6. ASCORBIC ACID [Concomitant]
  7. EFFEXOR [Concomitant]
     Dates: start: 20050701, end: 20060201
  8. POLYETH GLYCOL [Concomitant]
     Dates: start: 20060401, end: 20061001
  9. SEASONIQUE [Concomitant]
     Dates: start: 20070916, end: 20070919
  10. IBUPROFEN [Concomitant]

REACTIONS (5)
  - CHEST PAIN [None]
  - COUGH [None]
  - DYSPNOEA EXERTIONAL [None]
  - MUSCULOSKELETAL PAIN [None]
  - PULMONARY EMBOLISM [None]
